FAERS Safety Report 14983872 (Version 1)
Quarter: 2018Q2

REPORT INFORMATION
  Report Type: Spontaneous
  Country: US (occurrence: US)
  Receive Date: 20180607
  Receipt Date: 20180607
  Transmission Date: 20180711
  Serious: Yes (Hospitalization)
  Sender: FDA-Public Use
  Company Number: US-ASTRAZENECA-2018SE71676

PATIENT
  Age: 80 Year
  Sex: Male

DRUGS (1)
  1. ESOMEPRAZOLE MAGNESIUM. [Suspect]
     Active Substance: ESOMEPRAZOLE MAGNESIUM
     Indication: GASTROOESOPHAGEAL REFLUX DISEASE
     Dosage: UNK, DAILY
     Route: 048

REACTIONS (2)
  - Pneumonia [Recovered/Resolved]
  - Gastrooesophageal reflux disease [Recovered/Resolved]

NARRATIVE: CASE EVENT DATE: 201602
